FAERS Safety Report 14829301 (Version 1)
Quarter: 2018Q2

REPORT INFORMATION
  Report Type: Spontaneous
  Country: US (occurrence: US)
  Receive Date: 20180417
  Receipt Date: 20180417
  Transmission Date: 20180711
  Serious: No
  Sender: FDA-Public Use
  Company Number: None

PATIENT
  Age: 52 Year
  Sex: Female

DRUGS (9)
  1. MOBIC [Concomitant]
     Active Substance: MELOXICAM
     Dates: start: 20120509, end: 20160902
  2. LISINOPRIL. [Concomitant]
     Active Substance: LISINOPRIL
     Dates: start: 20170501
  3. ATENOLOL. [Concomitant]
     Active Substance: ATENOLOL
     Dates: start: 20180416
  4. TRAMADOL. [Concomitant]
     Active Substance: TRAMADOL
     Dates: start: 20170712, end: 20180416
  5. FLEXERIL [Concomitant]
     Active Substance: CYCLOBENZAPRINE HYDROCHLORIDE
     Dates: start: 20120501, end: 20170712
  6. OTEZLA [Suspect]
     Active Substance: APREMILAST
     Indication: PSORIASIS
     Route: 048
  7. VITAMIN B COMPLEX [Concomitant]
     Active Substance: CYANOCOBALAMIN\DEXPANTHENOL\NIACINAMIDE\PYRIDOXINE HYDROCHLORIDE\RIBOFLAVIN 5^-PHOSPHATE SODIUM\THIAMINE HYDROCHLORIDE\VITAMIN B COMPLEX
     Dates: start: 20120501
  8. MELOXICAM. [Concomitant]
     Active Substance: MELOXICAM
     Dates: start: 20171002, end: 20180416
  9. DICLOFENAC [Concomitant]
     Active Substance: DICLOFENAC
     Dates: start: 20160902

REACTIONS (3)
  - Intervertebral disc degeneration [None]
  - Condition aggravated [None]
  - Seasonal allergy [None]

NARRATIVE: CASE EVENT DATE: 20180317
